FAERS Safety Report 10685422 (Version 2)
Quarter: 2015Q1

REPORT INFORMATION
  Report Type: Spontaneous
  Country: US (occurrence: None)
  Receive Date: 20141229
  Receipt Date: 20150120
  Transmission Date: 20150720
  Serious: Yes (Hospitalization)
  Sender: FDA-Public Use
  Company Number: KAD201412-001700

PATIENT
  Age: 59 Year
  Sex: Male
  Weight: 87 kg

DRUGS (2)
  1. RIBAVIRIN. [Suspect]
     Active Substance: RIBAVIRIN
     Indication: HEPATITIS C
     Route: 048
     Dates: start: 20141202, end: 20141211
  2. SOFOSBUVIR/GS-5816 [Suspect]
     Active Substance: SOFOSBUVIR
     Indication: HEPATITIS C
     Route: 048
     Dates: start: 20141202

REACTIONS (14)
  - Blood bicarbonate decreased [None]
  - Haematocrit decreased [None]
  - Seizure [None]
  - Cerebral ischaemia [None]
  - Blood potassium increased [None]
  - Blood urea increased [None]
  - Blood creatinine increased [None]
  - Blood glucose increased [None]
  - Injection site infection [None]
  - Cerebral atrophy [None]
  - Malaise [None]
  - Hyponatraemia [None]
  - Sepsis [None]
  - Cerebellar atrophy [None]

NARRATIVE: CASE EVENT DATE: 20141214
